FAERS Safety Report 9478295 (Version 2)
Quarter: 2013Q3

REPORT INFORMATION
  Report Type: Spontaneous
  Country: US (occurrence: US)
  Receive Date: 20130827
  Receipt Date: 20130917
  Transmission Date: 20140515
  Serious: Yes (Other)
  Sender: FDA-Public Use
  Company Number: US-ASTRAZENECA-2013SE64246

PATIENT
  Age: 77 Year
  Sex: Female
  Weight: 45.8 kg

DRUGS (1)
  1. CRESTOR [Suspect]
     Indication: BLOOD CHOLESTEROL INCREASED
     Route: 048
     Dates: start: 201308, end: 201308

REACTIONS (4)
  - Arrhythmia [Recovered/Resolved]
  - Cardiac flutter [Unknown]
  - Adverse drug reaction [Unknown]
  - Feeling abnormal [Recovered/Resolved]
